FAERS Safety Report 16095755 (Version 1)
Quarter: 2019Q1

REPORT INFORMATION
  Report Type: Spontaneous
  Country: US (occurrence: US)
  Receive Date: 20190320
  Receipt Date: 20190320
  Transmission Date: 20190418
  Serious: Yes (Other)
  Sender: FDA-Public Use
  Company Number: None

PATIENT
  Age: 78 Year
  Weight: 79.4 kg

DRUGS (1)
  1. HEPARIN [Suspect]
     Active Substance: HEPARIN SODIUM
     Indication: CARDIOPULMONARY BYPASS

REACTIONS (8)
  - Packed red blood cell transfusion [None]
  - Cardiac procedure complication [None]
  - Pleural effusion [None]
  - Haemorrhagic anaemia [None]
  - Product substitution issue [None]
  - Complication associated with device [None]
  - Platelet count decreased [None]
  - Suspected product quality issue [None]

NARRATIVE: CASE EVENT DATE: 20181019
